FAERS Safety Report 12605041 (Version 3)
Quarter: 2016Q4

REPORT INFORMATION
  Report Type: Report from Study
  Country: None (occurrence: US)
  Receive Date: 20160728
  Receipt Date: 20161010
  Transmission Date: 20170207
  Serious: Yes (Other)
  Sender: FDA-Public Use
  Company Number: US-ABBVIE-16K-163-1683328-00

PATIENT
  Age: 12 Year
  Sex: Male

DRUGS (2)
  1. HUMIRA [Suspect]
     Active Substance: ADALIMUMAB
     Indication: CROHN^S DISEASE
     Dosage: DAY 1
     Route: 058
     Dates: start: 20160408, end: 20160408
  2. HUMIRA [Suspect]
     Active Substance: ADALIMUMAB
     Route: 058
     Dates: start: 20160422

REACTIONS (8)
  - Diarrhoea [Unknown]
  - Inflammatory marker increased [Unknown]
  - Colectomy [Unknown]
  - Diarrhoea [Unknown]
  - Insomnia [Not Recovered/Not Resolved]
  - Decreased appetite [Unknown]
  - Blood iron decreased [Unknown]
  - Insomnia [Recovering/Resolving]

NARRATIVE: CASE EVENT DATE: 2016
